FAERS Safety Report 14925689 (Version 1)
Quarter: 2018Q2

REPORT INFORMATION
  Report Type: Spontaneous
  Country: US (occurrence: US)
  Receive Date: 20180522
  Receipt Date: 20180522
  Transmission Date: 20180711
  Serious: No
  Sender: FDA-Public Use
  Company Number: US-AMAG PHARMACEUTICALS, INC.-AMAG201801505

PATIENT

DRUGS (5)
  1. INTRAROSA [Suspect]
     Active Substance: PRASTERONE
     Indication: VULVOVAGINAL DRYNESS
     Dosage: 6.5 MG, UNK
     Route: 067
     Dates: start: 20180212
  2. VITAMIN B12 [Concomitant]
     Active Substance: CYANOCOBALAMIN
     Indication: PRODUCT USED FOR UNKNOWN INDICATION
     Dosage: 1000 MG, UNK
     Route: 065
  3. PRAVASTATIN. [Concomitant]
     Active Substance: PRAVASTATIN
     Indication: PRODUCT USED FOR UNKNOWN INDICATION
     Dosage: 20 MG, UNK
     Route: 065
  4. INTRAROSA [Suspect]
     Active Substance: PRASTERONE
     Indication: VULVOVAGINAL DISCOMFORT
  5. INTRAROSA [Suspect]
     Active Substance: PRASTERONE
     Indication: ATROPHIC VULVOVAGINITIS

REACTIONS (3)
  - Insomnia [Not Recovered/Not Resolved]
  - Energy increased [Not Recovered/Not Resolved]
  - Off label use [Unknown]

NARRATIVE: CASE EVENT DATE: 2018
